FAERS Safety Report 7217624-9 (Version None)
Quarter: 2011Q1

REPORT INFORMATION
  Report Type: 
  Country: None (occurrence: None)
  Receive Date: 20110110
  Receipt Date: 20110101
  Transmission Date: 20110831
  Serious: Yes (Death, Other)
  Sender: FDA-Public Use
  Company Number: ID-ROCHE-749431

PATIENT
  Age: 12 Year
  Sex: Male
  Weight: 29 kg

DRUGS (3)
  1. CEFTRIAXONE SODIUM [Suspect]
     Route: 065
  2. OSELTAMIVIR [Suspect]
     Indication: AVIAN INFLUENZA
     Route: 065
  3. ACETAMINOPHEN [Concomitant]
     Dosage: UNITS: MG; DRUG NAME REPORTED AS PARACETAMOL/ACETAMINOPHEN

REACTIONS (3)
  - RENAL IMPAIRMENT [None]
  - ACUTE RESPIRATORY DISTRESS SYNDROME [None]
  - PNEUMONIA [None]
